FAERS Safety Report 4595866-9 (Version None)
Quarter: 2005Q1

REPORT INFORMATION
  Report Type: 
  Country: None (occurrence: None)
  Receive Date: 20050302
  Receipt Date: 20050211
  Transmission Date: 20050727
  Serious: Yes (Other)
  Sender: FDA-Public Use
  Company Number: 200510447EU

PATIENT
  Age: 20 Year
  Sex: Female

DRUGS (2)
  1. FLAGYL [Suspect]
     Indication: VAGINAL INFECTION
     Route: 048
  2. INTRAUTERINE CONTRACEPTIVE DEVICE [Suspect]
     Indication: CONTRACEPTION

REACTIONS (3)
  - DRUG INTERACTION [None]
  - UNINTENDED PREGNANCY [None]
  - VAGINITIS GARDNERELLA [None]
